FAERS Safety Report 7277583-X (Version None)
Quarter: 2011Q1

REPORT INFORMATION
  Report Type: 
  Country: None (occurrence: None)
  Receive Date: 20110207
  Receipt Date: 20110128
  Transmission Date: 20110831
  Serious: Yes (Hospitalization)
  Sender: FDA-Public Use
  Company Number: FR-AMGEN-FRASP2011005325

PATIENT
  Age: 60 Year
  Sex: Female

DRUGS (4)
  1. VECTIBIX [Suspect]
     Indication: ADENOCARCINOMA
     Dosage: 295 MG, UNK
     Route: 041
     Dates: start: 20110111, end: 20110111
  2. PLITICAN [Concomitant]
     Indication: PREMEDICATION
     Dosage: 100 MG, UNK
     Route: 042
     Dates: start: 20110111, end: 20110111
  3. LEVOFOLINATE [Concomitant]
     Indication: PREMEDICATION
     Dosage: 290 MG, UNK
     Route: 041
     Dates: start: 20110111, end: 20110111
  4. FLUOROURACIL WINTHROP [Suspect]
     Dosage: 3480 MG, UNK

REACTIONS (4)
  - LIVEDO RETICULARIS [None]
  - CHILLS [None]
  - HYPERTENSION [None]
  - PYREXIA [None]
